FAERS Safety Report 25340613 (Version 1)
Quarter: 2025Q2

REPORT INFORMATION
  Report Type: Spontaneous
  Country: TN (occurrence: TN)
  Receive Date: 20250521
  Receipt Date: 20250521
  Transmission Date: 20250716
  Serious: Yes (Hospitalization, Other)
  Sender: SANOFI AVENTIS
  Company Number: TN-SA-2025SA142820

PATIENT
  Age: 65 Year
  Sex: Female

DRUGS (3)
  1. TOUJEO [Suspect]
     Active Substance: INSULIN GLARGINE
     Indication: Type 2 diabetes mellitus
     Dosage: 29 IU, QD (I.E., 0.49 U/KG/DAY
     Dates: start: 202503, end: 202505
  2. INSULIN HUMAN [Concomitant]
     Active Substance: INSULIN HUMAN
  3. INSULIN HUMAN [Concomitant]
     Active Substance: INSULIN HUMAN

REACTIONS (1)
  - Diabetic ketosis [Recovered/Resolved]

NARRATIVE: CASE EVENT DATE: 20250501
